FAERS Safety Report 17974173 (Version 1)
Quarter: 2020Q3

REPORT INFORMATION
  Report Type: Spontaneous
  Country: US (occurrence: US)
  Receive Date: 20200701
  Receipt Date: 20200701
  Transmission Date: 20201103
  Serious: No
  Sender: FDA-Public Use
  Company Number: None

PATIENT
  Age: 70 Year
  Sex: Male
  Weight: 97.52 kg

DRUGS (2)
  1. GLIMPERIDE [Concomitant]
     Active Substance: GLIMEPIRIDE
  2. METFORMIN [Suspect]
     Active Substance: METFORMIN HYDROCHLORIDE
     Indication: TYPE 2 DIABETES MELLITUS
     Dosage: ?          QUANTITY:2 DF DOSAGE FORM;?
     Route: 048
     Dates: start: 20200107

REACTIONS (2)
  - Product substitution issue [None]
  - Therapeutic response decreased [None]

NARRATIVE: CASE EVENT DATE: 20200107
